FAERS Safety Report 5373486-6 (Version None)
Quarter: 2007Q2

REPORT INFORMATION
  Report Type: 
  Country: None (occurrence: None)
  Receive Date: 20070626
  Receipt Date: 20070626
  Transmission Date: 20071010
  Serious: Yes (Hospitalization)
  Sender: FDA-Public Use
  Company Number: None

PATIENT
  Sex: Female
  Weight: 38.9 kg

DRUGS (3)
  1. MYLOTARG [Suspect]
  2. MITOXANTRONE HCL [Suspect]
  3. CYTARABINE [Suspect]

REACTIONS (13)
  - ASPERGILLOSIS [None]
  - BLOOD CULTURE POSITIVE [None]
  - BRAIN STEM INFARCTION [None]
  - CEREBRAL HAEMORRHAGE [None]
  - FACIAL PALSY [None]
  - FUNGAL INFECTION [None]
  - MENINGITIS [None]
  - NERVE COMPRESSION [None]
  - NEUTROPENIA [None]
  - OTITIS EXTERNA [None]
  - PHARYNGEAL OEDEMA [None]
  - RESPIRATORY DISTRESS [None]
  - STREPTOCOCCAL INFECTION [None]
